FAERS Safety Report 8099318-3 (Version None)
Quarter: 2012Q1

REPORT INFORMATION
  Report Type: 
  Country: None (occurrence: None)
  Receive Date: 20120131
  Receipt Date: 20120123
  Transmission Date: 20120608
  Serious: Yes (Hospitalization, Other)
  Sender: FDA-Public Use
  Company Number: FR-PFIZER INC-2010161330

PATIENT
  Age: 66 Year
  Sex: Male
  Weight: 84 kg

DRUGS (6)
  1. SUNITINIB MALATE [Suspect]
     Indication: PROSTATE CANCER
     Dosage: 37.5 MG, 1X/DAY
     Route: 048
     Dates: start: 20100729, end: 20101119
  2. OXYCODONE [Concomitant]
     Indication: BONE PAIN
     Dosage: UNK
     Dates: start: 20100601
  3. GOSERELIN [Concomitant]
     Indication: PROSTATE CANCER
     Dosage: UNK
     Dates: start: 20060623
  4. ESCITALOPRAM [Concomitant]
     Indication: ANXIETY
     Dosage: UNK
  5. PREDNISONE TAB [Suspect]
     Indication: PROSTATE CANCER
     Dosage: 5 MG, 2X/DAY
     Route: 048
     Dates: start: 20100729
  6. PREGABALIN [Concomitant]
     Indication: NERVOUS SYSTEM DISORDER
     Dosage: UNK
     Dates: start: 20100101

REACTIONS (3)
  - GINGIVAL BLEEDING [None]
  - OSTEITIS [None]
  - IMPAIRED HEALING [None]
